FAERS Safety Report 4781557-8 (Version None)
Quarter: 2005Q3

REPORT INFORMATION
  Report Type: 
  Country: None (occurrence: None)
  Receive Date: 20050928
  Receipt Date: 20050303
  Transmission Date: 20060218
  Serious: Yes (Life-Threatening, Hospitalization)
  Sender: FDA-Public Use
  Company Number: US-ROCHE-397620

PATIENT
  Age: 53 Year
  Sex: Male
  Weight: 72.6 kg

DRUGS (14)
  1. PEG-INTERFERON ALFA 2A (RO 25-8310) [Suspect]
     Route: 058
     Dates: start: 20011011
  2. PEG-INTERFERON ALFA 2A (RO 25-8310) [Suspect]
     Route: 058
     Dates: end: 20050302
  3. PEG-INTERFERON ALFA 2A (RO 25-8310) [Suspect]
     Route: 058
     Dates: start: 20050318, end: 20050530
  4. RIBAVIRIN [Suspect]
     Route: 048
     Dates: start: 20011011
  5. QUININE SULFATE [Suspect]
     Route: 065
     Dates: start: 20041006, end: 20050228
  6. FLOMAX [Concomitant]
  7. MULTIVITAMIN NOS [Concomitant]
     Indication: PROPHYLAXIS
  8. TYLENOL (CAPLET) [Concomitant]
     Indication: HEADACHE
  9. PERCOCET [Concomitant]
     Indication: HERNIA PAIN
     Dates: start: 20030122
  10. BETAMETHASONE CREAM [Concomitant]
     Indication: RASH
     Dates: start: 20040106
  11. LISINOPRIL [Concomitant]
     Indication: HYPERTENSION
     Dates: start: 20040716
  12. KEFZOL [Concomitant]
     Dates: start: 20050530
  13. DIGOXIN [Concomitant]
  14. TOPRAL [Concomitant]

REACTIONS (25)
  - AORTIC DILATATION [None]
  - AORTIC VALVE INCOMPETENCE [None]
  - ATRIAL FIBRILLATION [None]
  - BLOOD MAGNESIUM DECREASED [None]
  - CARDIOVASCULAR DISORDER [None]
  - CELLULITIS [None]
  - CHOLECYSTITIS ACUTE [None]
  - CREATINE PHOSPHOKINASE DECREASED [None]
  - DILATATION ATRIAL [None]
  - ELECTROCARDIOGRAM ST-T CHANGE [None]
  - HAEMATOCRIT DECREASED [None]
  - HYPERHIDROSIS [None]
  - HYPERTENSION [None]
  - MITRAL VALVE INCOMPETENCE [None]
  - MYOCARDIAL ISCHAEMIA [None]
  - ORTHOSTATIC HYPOTENSION [None]
  - OSTEOMYELITIS [None]
  - PANCYTOPENIA [None]
  - PROTHROMBIN TIME SHORTENED [None]
  - SPLENOMEGALY [None]
  - TACHYCARDIA [None]
  - THROMBOCYTOPENIA [None]
  - THROMBOSIS [None]
  - VENTRICULAR HYPERTROPHY [None]
  - WHITE BLOOD CELL COUNT DECREASED [None]
